FAERS Safety Report 26130558 (Version 2)
Quarter: 2025Q4

REPORT INFORMATION
  Report Type: Spontaneous
  Country: US (occurrence: US)
  Receive Date: 20251208
  Receipt Date: 20251211
  Transmission Date: 20260118
  Serious: No
  Sender: BAYER HEALTHCARE PHARMACEUTICALS INC.
  Company Number: US-BAYER-2025A160933

PATIENT
  Age: 63 Year
  Sex: Female

DRUGS (2)
  1. BETASERON [Suspect]
     Active Substance: INTERFERON BETA-1B
     Dosage: UNK
  2. DEVICE [Suspect]
     Active Substance: DEVICE
     Dosage: UNK
     Dates: end: 20251203

REACTIONS (4)
  - Incorrect dose administered by device [None]
  - Device issue [None]
  - Device operational issue [None]
  - Expired device used [None]

NARRATIVE: CASE EVENT DATE: 20251117
